FAERS Safety Report 10970986 (Version 2)
Quarter: 2015Q2

REPORT INFORMATION
  Report Type: Spontaneous
  Country: US (occurrence: US)
  Receive Date: 20150331
  Receipt Date: 20150603
  Transmission Date: 20150821
  Serious: No
  Sender: FDA-Public Use
  Company Number: US-PFIZER INC-2015111024

PATIENT
  Age: 62 Year
  Sex: Female
  Weight: 57 kg

DRUGS (3)
  1. ARMOUR THYROID [Concomitant]
     Active Substance: THYROID, PORCINE\THYROID, UNSPECIFIED
     Indication: BASEDOW^S DISEASE
     Dosage: 180 MG, 1X/DAY, EVERY MORNING
  2. ESTRADIOL/ESTRIOL/PROGESTERONE [Concomitant]
     Indication: HORMONE REPLACEMENT THERAPY
     Dosage: 1 DF, 1X/DAY, 1.25 MG OF ESTROGENS AND 25 MG OF PROGESTERONE
  3. ZYVOX [Suspect]
     Active Substance: LINEZOLID
     Indication: SKIN LESION
     Dosage: 600 MG, 2X/DAY
     Dates: start: 20150314

REACTIONS (2)
  - Drug prescribing error [Unknown]
  - Drug effect incomplete [Not Recovered/Not Resolved]

NARRATIVE: CASE EVENT DATE: 20150314
